FAERS Safety Report 7023575-5 (Version None)
Quarter: 2010Q3

REPORT INFORMATION
  Report Type: 
  Country: None (occurrence: None)
  Receive Date: 20100930
  Receipt Date: 20100930
  Transmission Date: 20110219
  Serious: Yes (Other)
  Sender: FDA-Public Use
  Company Number: None

PATIENT
  Age: 74 Year
  Sex: Female
  Weight: 88.4514 kg

DRUGS (2)
  1. LYRICA [Suspect]
     Indication: HEADACHE
     Dosage: 50 MG. TWICE DAILY ORAL 75 MG. (SHORT TIME)
     Dates: start: 20060329, end: 20060901
  2. LYRICA [Suspect]
     Indication: PROPHYLAXIS
     Dosage: 50 MG. TWICE DAILY ORAL 75 MG. (SHORT TIME)
     Dates: start: 20060329, end: 20060901

REACTIONS (2)
  - PAIN [None]
  - PARAESTHESIA [None]
